FAERS Safety Report 9975830 (Version 1)
Quarter: 2014Q1

REPORT INFORMATION
  Report Type: Report from Study
  Country: US (occurrence: US)
  Receive Date: 20140306
  Receipt Date: 20140306
  Transmission Date: 20141002
  Serious: Yes (Hospitalization)
  Sender: FDA-Public Use
  Company Number: PHHO2014US003042

PATIENT
  Age: 55 Year
  Sex: Male
  Weight: 72.2 kg

DRUGS (2)
  1. ACETYLSALICYLIC ACID [Suspect]
     Indication: ANTICOAGULANT THERAPY
     Dosage: 81 MG, QD
     Route: 048
     Dates: start: 20140129, end: 20140226
  2. AUY922 [Suspect]
     Indication: MYELOFIBROSIS
     Dosage: 55 MG/M2, WEEKLY
     Route: 041
     Dates: start: 20130909

REACTIONS (1)
  - Melaena [Not Recovered/Not Resolved]
